FAERS Safety Report 6382057-4 (Version None)
Quarter: 2009Q3

REPORT INFORMATION
  Report Type: 
  Country: None (occurrence: None)
  Receive Date: 20090930
  Receipt Date: 20090921
  Transmission Date: 20100115
  Serious: Yes (Hospitalization, Other)
  Sender: FDA-Public Use
  Company Number: ZA-BRISTOL-MYERS SQUIBB COMPANY-14794606

PATIENT
  Age: 9 Year
  Sex: Female
  Weight: 26 kg

DRUGS (6)
  1. STAVUDINE [Suspect]
     Indication: ANTIRETROVIRAL THERAPY
  2. LAMIVUDINE [Suspect]
     Indication: ANTIRETROVIRAL THERAPY
  3. LOPINAVIR [Suspect]
     Indication: ANTIRETROVIRAL THERAPY
  4. RITONAVIR [Interacting]
     Indication: ANTIRETROVIRAL THERAPY
  5. ISONIAZID [Interacting]
     Indication: TUBERCULOSIS
  6. FLUOXETINE [Interacting]

REACTIONS (3)
  - DELIRIUM [None]
  - DRUG INTERACTION [None]
  - SEROTONIN SYNDROME [None]
